FAERS Safety Report 14091851 (Version 5)
Quarter: 2022Q1

REPORT INFORMATION
  Report Type: Report from Study
  Country: FI (occurrence: FI)
  Receive Date: 20171016
  Receipt Date: 20220121
  Transmission Date: 20220424
  Serious: Yes (Hospitalization)
  Sender: FDA-Public Use
  Company Number: FI-BAYER-2017-111611

PATIENT
  Age: 69 Year
  Sex: Female
  Weight: 71 kg

DRUGS (17)
  1. COPANLISIB [Suspect]
     Active Substance: COPANLISIB
     Indication: Follicle centre lymphoma, follicular grade I, II, III
     Dosage: CYCLE 1 DAY 1, 60 MG
     Route: 042
     Dates: start: 20170530, end: 20170530
  2. COPANLISIB [Suspect]
     Active Substance: COPANLISIB
     Indication: Follicle centre lymphoma, follicular grade I, II, III
     Dosage: CYCLE 1 DAY 8, 60 MG
     Route: 042
     Dates: start: 20170605, end: 20170605
  3. RITUXIMAB [Suspect]
     Active Substance: RITUXIMAB
     Indication: Follicle centre lymphoma, follicular grade I, II, III
     Dosage: 375 MG/M2, Q4WK (649 MG)
     Route: 042
     Dates: start: 20170530, end: 20170530
  4. BENDAMUSTINE [Suspect]
     Active Substance: BENDAMUSTINE
     Indication: Follicle centre lymphoma, follicular grade I, II, III
     Dosage: 90 MG/M2, Q4WK (156 MG)
     Route: 042
     Dates: start: 20170530, end: 20170530
  5. BENDAMUSTINE [Suspect]
     Active Substance: BENDAMUSTINE
     Indication: Follicle centre lymphoma, follicular grade I, II, III
     Dosage: 90 MG/M2, Q4WK (156 MG)
     Route: 042
     Dates: start: 20170531, end: 20170531
  6. MIRTAZAPINE [Concomitant]
     Active Substance: MIRTAZAPINE
     Indication: Depression
     Dosage: 15 MG DAILY
     Route: 048
     Dates: start: 2005
  7. CHLORPROTHIXENE [Concomitant]
     Active Substance: CHLORPROTHIXENE
     Indication: Depression
     Dosage: 50 MG DAILY
     Route: 048
     Dates: start: 200503
  8. MELATONIN [Concomitant]
     Active Substance: MELATONIN
     Indication: Insomnia
     Dosage: 2 MG DAILY
     Route: 048
     Dates: start: 2005
  9. COTRIM [Concomitant]
     Active Substance: SULFAMETHOXAZOLE\TRIMETHOPRIM
     Indication: Infection prophylaxis
     Dosage: 80/400MG DAILY
     Route: 048
     Dates: start: 20170530
  10. CETIRIZINE HYDROCHLORIDE [Concomitant]
     Active Substance: CETIRIZINE HYDROCHLORIDE
     Indication: Premedication
     Dosage: 10 MG, ONCE
     Route: 048
     Dates: start: 20170530
  11. PARATABS [Concomitant]
     Indication: Premedication
     Dosage: 1 G, ONCE
     Route: 048
     Dates: start: 20170530
  12. ZOFRAN [Concomitant]
     Active Substance: ONDANSETRON HYDROCHLORIDE
     Indication: Prophylaxis of nausea and vomiting
     Dosage: 8 MG, ONCE
     Route: 048
     Dates: start: 20170530
  13. PRIMPERAN [Concomitant]
     Active Substance: METOCLOPRAMIDE HYDROCHLORIDE
     Indication: Prophylaxis of nausea and vomiting
     Dosage: 100 MG X3, PRN
     Dates: start: 20170530
  14. BISOPROLOL FUMARATE [Concomitant]
     Active Substance: BISOPROLOL FUMARATE
     Indication: Tachycardia
     Dosage: 2.5 MG PRN
     Route: 048
     Dates: start: 20170611
  15. ENOXAPARIN SODIUM [Concomitant]
     Active Substance: ENOXAPARIN SODIUM
     Indication: Pulmonary embolism
     Dosage: 60 MG, BID
     Route: 058
     Dates: start: 20170713, end: 20170720
  16. ENOXAPARIN SODIUM [Concomitant]
     Active Substance: ENOXAPARIN SODIUM
     Indication: Pulmonary embolism
     Dosage: 40 MG, BID
     Route: 058
     Dates: start: 20170721
  17. PANTOPRAZOLE SODIUM [Concomitant]
     Active Substance: PANTOPRAZOLE SODIUM
     Indication: Adverse event
     Dosage: 40 MG, QD
     Dates: start: 20170608

REACTIONS (4)
  - Stevens-Johnson syndrome [Recovered/Resolved with Sequelae]
  - Pyrexia [Recovered/Resolved]
  - Hyperglycaemia [Recovered/Resolved]
  - Lymphopenia [Recovered/Resolved]

NARRATIVE: CASE EVENT DATE: 20170605
